FAERS Safety Report 23276486 (Version 1)
Quarter: 2023Q4

REPORT INFORMATION
  Report Type: Spontaneous
  Country: CN (occurrence: CN)
  Receive Date: 20231208
  Receipt Date: 20231208
  Transmission Date: 20240110
  Serious: Yes (Hospitalization)
  Sender: FDA-Public Use
  Company Number: CN-PFIZER INC-PV202300197814

PATIENT
  Age: 39 Year
  Sex: Male
  Weight: 75 kg

DRUGS (3)
  1. METHOTREXATE SODIUM [Suspect]
     Active Substance: METHOTREXATE SODIUM
     Indication: T-cell lymphoma
     Dosage: 350 MG, 1X/DAY
     Route: 041
     Dates: start: 20231020, end: 20231020
  2. CYTARABINE [Suspect]
     Active Substance: CYTARABINE
     Indication: T-cell lymphoma
     Dosage: 1500 MG, 2X/DAY
     Route: 041
     Dates: start: 20231020, end: 20231022
  3. SINTILIMAB [Concomitant]
     Active Substance: SINTILIMAB
     Dosage: 200 MG
     Dates: start: 20231019

REACTIONS (7)
  - Rash [Recovering/Resolving]
  - Drug eruption [Recovering/Resolving]
  - Pruritus [Recovering/Resolving]
  - Rash erythematous [Recovering/Resolving]
  - Skin disorder [Recovering/Resolving]
  - Rash papular [Recovering/Resolving]
  - Petechiae [Recovering/Resolving]

NARRATIVE: CASE EVENT DATE: 20231027
